FAERS Safety Report 10144621 (Version 1)
Quarter: 2014Q2

REPORT INFORMATION
  Report Type: Spontaneous
  Country: US (occurrence: US)
  Receive Date: 20140430
  Receipt Date: 20140430
  Transmission Date: 20141212
  Serious: No
  Sender: FDA-Public Use
  Company Number: US-SANOFI-AVENTIS-2013SA048250

PATIENT
  Sex: 0

DRUGS (7)
  1. ENOXAPARIN SODIUM - WINTHROP [Suspect]
     Indication: HAEMORRHAGE
     Route: 065
  2. ENOXAPARIN SODIUM - WINTHROP [Suspect]
     Indication: CONTUSION
     Route: 065
  3. ENOXAPARIN SODIUM - WINTHROP [Suspect]
     Indication: PAIN
     Route: 065
  4. ENOXAPARIN SODIUM - WINTHROP [Suspect]
     Indication: HAEMORRHAGE
     Route: 065
  5. ENOXAPARIN SODIUM - WINTHROP [Suspect]
     Indication: CONTUSION
     Route: 065
  6. ENOXAPARIN SODIUM - WINTHROP [Suspect]
     Indication: PAIN
     Route: 065
  7. COUMADIN [Concomitant]

REACTIONS (5)
  - Injection site pain [Unknown]
  - Asthenia [Unknown]
  - Peripheral swelling [Unknown]
  - Peripheral swelling [Unknown]
  - Gait disturbance [Unknown]
